FAERS Safety Report 8926221 (Version 1)
Quarter: 2012Q4

REPORT INFORMATION
  Report Type: 
  Country: JP (occurrence: JP)
  Receive Date: 20121126
  Receipt Date: 20121126
  Transmission Date: 20130627
  Serious: Yes (Other)
  Sender: FDA-Public Use
  Company Number: PHHY2012JP106644

PATIENT
  Age: 44 Year
  Sex: Female

DRUGS (3)
  1. FTY 720 [Suspect]
     Indication: MULTIPLE SCLEROSIS RELAPSE
     Dosage: 0.5 mg, daily
     Route: 048
     Dates: start: 20120405, end: 20120813
  2. AVONEX [Concomitant]
     Dosage: 15 ug, per week
  3. SEROQUEL [Concomitant]
     Dosage: 25 mg, daily
     Route: 048

REACTIONS (5)
  - Rash [Recovered/Resolved]
  - White blood cell count decreased [Unknown]
  - Lymphocyte count decreased [Recovering/Resolving]
  - Gamma-glutamyltransferase increased [Recovering/Resolving]
  - Blood pressure increased [Unknown]
